FAERS Safety Report 6137376-3 (Version None)
Quarter: 2009Q1

REPORT INFORMATION
  Report Type: 
  Country: None (occurrence: None)
  Receive Date: 20090330
  Receipt Date: 20090319
  Transmission Date: 20090719
  Serious: Yes (Hospitalization)
  Sender: FDA-Public Use
  Company Number: US-ALLERGAN-0903729US

PATIENT
  Sex: Female
  Weight: 61.224 kg

DRUGS (13)
  1. BOTULINUM TOXIN TYPE A [Suspect]
     Indication: MUSCLE SPASTICITY
     Dosage: UNK, SINGLE
     Route: 030
     Dates: start: 20090114, end: 20090114
  2. BOTULINUM TOXIN TYPE A [Suspect]
     Indication: UPPER MOTOR NEURONE LESION
  3. ASPIRIN [Concomitant]
     Indication: ARTERIOSCLEROSIS
     Dosage: 325 MG, QD
     Route: 048
  4. VYTORIN [Concomitant]
     Indication: HYPERLIPIDAEMIA
     Dosage: 10-80 MG DAILY
     Route: 048
  5. CATAPRES [Concomitant]
     Indication: HYPERTENSION
     Dosage: 0.2 MG, QD
     Route: 048
  6. OMEPRAZOLE [Concomitant]
     Indication: GASTROOESOPHAGEAL REFLUX DISEASE
     Dosage: 20 MG, QD
     Route: 048
  7. VASOTEC [Concomitant]
     Indication: HYPERTENSION
     Dosage: 40 MG, QD
     Route: 048
  8. CARVEDILOL [Concomitant]
     Indication: HYPERTENSION
     Dosage: 25 MG, QD
     Route: 048
  9. EFFEXOR XR [Concomitant]
     Indication: DEPRESSION
     Dosage: 75 MG, QD
     Route: 048
  10. CALCIUM +VIT D [Concomitant]
     Indication: VITAMIN D DEFICIENCY
     Dosage: 600 PLUS 600-200 MG DAILY
     Route: 048
  11. RECLAST [Concomitant]
     Indication: OSTEOPOROSIS
     Dosage: 5 MG/100 ML YEARLY
     Route: 042
  12. FLAXSEED OIL [Concomitant]
     Indication: HYPERTENSION
     Dosage: 1000 MG, QD
     Route: 048
  13. HYDROCHLOROTHIAZIDE [Concomitant]
     Indication: HYPERTENSION
     Dosage: 12.5 MG, QD

REACTIONS (4)
  - BACTERAEMIA [None]
  - CARDIAC FAILURE CONGESTIVE [None]
  - CELLULITIS [None]
  - CHRONIC OBSTRUCTIVE PULMONARY DISEASE [None]
